FAERS Safety Report 4922233-8 (Version None)
Quarter: 2006Q1

REPORT INFORMATION
  Report Type: 
  Country: None (occurrence: None)
  Receive Date: 20060224
  Receipt Date: 20041109
  Transmission Date: 20060701
  Serious: Yes (Hospitalization, Other)
  Sender: FDA-Public Use
  Company Number: DE-MERCK-0411DEU00166

PATIENT
  Age: 59 Year
  Sex: Male
  Weight: 82 kg

DRUGS (1)
  1. VIOXX [Suspect]
     Indication: SPORTS INJURY
     Route: 048
     Dates: start: 20010101

REACTIONS (4)
  - ANGINA PECTORIS [None]
  - CORONARY ARTERY DISEASE [None]
  - MYOCARDIAL INFARCTION [None]
  - TENDON RUPTURE [None]
